FAERS Safety Report 5212696-5 (Version None)
Quarter: 2006Q4

REPORT INFORMATION
  Report Type: 
  Country: None (occurrence: None)
  Receive Date: 20061115
  Receipt Date: 20060630
  Transmission Date: 20070319
  Serious: No
  Sender: FDA-Public Use
  Company Number: 200610794BWH

PATIENT
  Age: 58 Year
  Sex: Male
  Weight: 64.4108 kg

DRUGS (6)
  1. NEXAVAR [Suspect]
     Indication: RENAL CELL CARCINOMA RECURRENT
     Dosage: SEE IMAGE
     Route: 048
     Dates: start: 20060125, end: 20060211
  2. NEXAVAR [Suspect]
     Indication: RENAL CELL CARCINOMA RECURRENT
     Dosage: SEE IMAGE
     Route: 048
     Dates: start: 20060217
  3. . [Concomitant]
  4. ADVIL [Concomitant]
  5. LISINOPRIL [Concomitant]
  6. ALLOPURINOL [Concomitant]

REACTIONS (9)
  - CONSTIPATION [None]
  - DYSGEUSIA [None]
  - GINGIVAL BLEEDING [None]
  - GINGIVAL PAIN [None]
  - GINGIVAL SWELLING [None]
  - INFLUENZA LIKE ILLNESS [None]
  - PALMAR-PLANTAR ERYTHRODYSAESTHESIA SYNDROME [None]
  - RASH PRURITIC [None]
  - STOMATITIS [None]
